FAERS Safety Report 10565328 (Version 3)
Quarter: 2014Q4

REPORT INFORMATION
  Report Type: Report from Study
  Country: TN (occurrence: TN)
  Receive Date: 20141105
  Receipt Date: 20141114
  Transmission Date: 20150529
  Serious: Yes (Other)
  Sender: FDA-Public Use
  Company Number: PHHY2014TN048677

PATIENT
  Age: 10 Year
  Sex: Male

DRUGS (3)
  1. EXJADE [Suspect]
     Active Substance: DEFERASIROX
     Dosage: 1500 MG, PER DAY
     Route: 048
  2. EXJADE [Suspect]
     Active Substance: DEFERASIROX
     Indication: THALASSAEMIA BETA
     Dosage: 1000 MG, QD
     Route: 048
     Dates: start: 20130508
  3. EXJADE [Suspect]
     Active Substance: DEFERASIROX
     Dosage: DOSE INCREASED
     Route: 065
     Dates: start: 20140307

REACTIONS (2)
  - Chronic hepatic failure [Unknown]
  - Iron overload [Recovered/Resolved]

NARRATIVE: CASE EVENT DATE: 20140419
